FAERS Safety Report 5545799-6 (Version None)
Quarter: 2007Q4

REPORT INFORMATION
  Report Type: 
  Country: None (occurrence: None)
  Receive Date: 20071207
  Receipt Date: 20071126
  Transmission Date: 20080405
  Serious: Yes (Other)
  Sender: FDA-Public Use
  Company Number: 2007AD000109

PATIENT
  Age: 55 Year
  Sex: Female

DRUGS (3)
  1. CEPHALEXIN [Suspect]
     Indication: URINARY TRACT INFECTION
  2. GENTAMICIN [Concomitant]
  3. TRIMETHOPRIM [Concomitant]

REACTIONS (3)
  - ENDOPHTHALMITIS [None]
  - HYPOPYON [None]
  - VITRITIS [None]
